FAERS Safety Report 9922302 (Version 4)
Quarter: 2014Q2

REPORT INFORMATION
  Report Type: Spontaneous
  Country: JP (occurrence: JP)
  Receive Date: 20140225
  Receipt Date: 20140408
  Transmission Date: 20141212
  Serious: Yes (Hospitalization)
  Sender: FDA-Public Use
  Company Number: JP-GLAXOSMITHKLINE-B0971478A

PATIENT
  Age: 56 Year
  Sex: Male

DRUGS (9)
  1. LAMICTAL [Suspect]
     Indication: BIPOLAR I DISORDER
     Dosage: 25MG PER DAY
     Route: 048
     Dates: start: 20131028, end: 20131106
  2. LAMICTAL [Suspect]
     Indication: BIPOLAR I DISORDER
     Dosage: 25MG TWICE PER DAY
     Route: 048
     Dates: start: 20131107, end: 20131118
  3. LAMICTAL [Suspect]
     Indication: BIPOLAR I DISORDER
     Dosage: 50MG TWICE PER DAY
     Route: 048
     Dates: start: 20131119, end: 20131201
  4. LAMICTAL [Suspect]
     Indication: BIPOLAR I DISORDER
     Dosage: 100MG TWICE PER DAY
     Route: 048
     Dates: start: 20131202, end: 20140131
  5. ZYLORIC [Suspect]
     Indication: HYPERURICAEMIA
     Dosage: 100MG TWICE PER DAY
     Route: 048
     Dates: end: 20140131
  6. QUETIAPINE [Concomitant]
     Route: 048
  7. CONIEL [Concomitant]
     Route: 048
  8. ZYRTEC [Concomitant]
     Indication: DRUG ERUPTION
     Route: 048
     Dates: start: 201401
  9. SODIUM VALPROATE [Concomitant]
     Indication: BIPOLAR I DISORDER
     Route: 048

REACTIONS (20)
  - Self injurious behaviour [Unknown]
  - Stevens-Johnson syndrome [Recovering/Resolving]
  - Suicide attempt [Recovering/Resolving]
  - Ileus paralytic [Unknown]
  - Rash papular [Recovering/Resolving]
  - Rash [Unknown]
  - Rash [Recovering/Resolving]
  - Drug eruption [Recovering/Resolving]
  - Depressive symptom [Unknown]
  - Restlessness [Unknown]
  - Delusion of grandeur [Unknown]
  - Rash erythematous [Recovering/Resolving]
  - Dandruff [Recovering/Resolving]
  - Papule [Recovering/Resolving]
  - Delusion [Unknown]
  - Feeling cold [Unknown]
  - Constipation [Unknown]
  - Insomnia [Unknown]
  - Hypomania [Unknown]
  - Pigmentation disorder [Not Recovered/Not Resolved]
